FAERS Safety Report 7380969-6 (Version None)
Quarter: 2011Q1

REPORT INFORMATION
  Report Type: 
  Country: None (occurrence: None)
  Receive Date: 20110329
  Receipt Date: 20110318
  Transmission Date: 20110831
  Serious: Yes (Hospitalization, Other)
  Sender: FDA-Public Use
  Company Number: US-ASTRAZENECA-2008UW21239

PATIENT
  Age: 54 Year
  Sex: Female
  Weight: 135.6 kg

DRUGS (1)
  1. SEROQUEL [Suspect]
     Indication: BIPOLAR DISORDER
     Dosage: 50 MG TO 800 MG DAILY
     Route: 048
     Dates: start: 20030101, end: 20080401

REACTIONS (7)
  - TOOTH LOSS [None]
  - DENTURE WEARER [None]
  - TARDIVE DYSKINESIA [None]
  - BONE DISORDER [None]
  - SLEEP APNOEA SYNDROME [None]
  - WEIGHT INCREASED [None]
  - BODY HEIGHT DECREASED [None]
